FAERS Safety Report 8453566-9 (Version None)
Quarter: 2012Q2

REPORT INFORMATION
  Report Type: 
  Country: None (occurrence: None)
  Receive Date: 20120614
  Receipt Date: 20120531
  Transmission Date: 20120825
  Serious: No
  Sender: FDA-Public Use
  Company Number: TPA2012A03404

PATIENT
  Age: 46 Year
  Sex: Male

DRUGS (1)
  1. ADENURIC (FEBUXOSTAT) [Suspect]
     Indication: HYPERURICAEMIA
     Dosage: 80 MG (80 MG, 1 IN 1 D) ORAL
     Route: 048
     Dates: start: 20111220, end: 20120104

REACTIONS (5)
  - OSTEONECROSIS [None]
  - OSTEOARTHRITIS [None]
  - EOSINOPHILIA [None]
  - DERMATITIS EXFOLIATIVE [None]
  - RASH [None]
